FAERS Safety Report 13010273 (Version 2)
Quarter: 2017Q1

REPORT INFORMATION
  Report Type: Report from Study
  Country: DE (occurrence: DE)
  Receive Date: 20161208
  Receipt Date: 20170203
  Transmission Date: 20170428
  Serious: Yes (Hospitalization)
  Sender: FDA-Public Use
  Company Number: DE-CELGENEUS-DEU-2016120681

PATIENT
  Age: 63 Year
  Sex: Female

DRUGS (19)
  1. ATEZOLIZUMAB [Suspect]
     Active Substance: ATEZOLIZUMAB
     Indication: NON-SMALL CELL LUNG CANCER
     Dosage: 1200
     Route: 041
     Dates: start: 20161006
  2. OXYCODONE HYDROCHLORIDE. [Concomitant]
     Active Substance: OXYCODONE HYDROCHLORIDE
     Indication: MUSCULOSKELETAL PAIN
     Route: 065
     Dates: start: 20160807
  3. METAMIZOL SODIUM [Concomitant]
     Active Substance: METAMIZOL SODIUM
     Indication: PULMONARY PAIN
     Route: 065
     Dates: start: 20160807
  4. SODIUM CHLORIDE. [Concomitant]
     Active Substance: SODIUM CHLORIDE
     Indication: NAUSEA
     Route: 065
     Dates: start: 20161103, end: 20161103
  5. SODIUM CHLORIDE. [Concomitant]
     Active Substance: SODIUM CHLORIDE
     Route: 065
     Dates: start: 20161110, end: 20161110
  6. RED BLOOD CELLS [Concomitant]
     Active Substance: HUMAN RED BLOOD CELL
     Indication: ANAEMIA
     Route: 065
     Dates: start: 20161110, end: 20161110
  7. GRANISETRON [Concomitant]
     Active Substance: GRANISETRON
     Indication: NAUSEA
     Route: 065
     Dates: start: 20161110, end: 20161110
  8. GRANISETRON [Concomitant]
     Active Substance: GRANISETRON
     Route: 065
     Dates: start: 20161103, end: 20161103
  9. DIHYDROCODEINE [Concomitant]
     Active Substance: DIHYDROCODEINE
     Indication: COUGH
     Route: 065
     Dates: start: 20161026
  10. ONDANSETRON [Concomitant]
     Active Substance: ONDANSETRON
     Indication: NAUSEA
     Route: 065
     Dates: start: 20161008
  11. OXYCODONE HYDROCHLORIDE. [Concomitant]
     Active Substance: OXYCODONE HYDROCHLORIDE
     Indication: PULMONARY PAIN
  12. PREGABALIN. [Concomitant]
     Active Substance: PREGABALIN
     Indication: SLEEP DISORDER
     Route: 065
     Dates: start: 20160807
  13. RED BLOOD CELLS [Concomitant]
     Active Substance: HUMAN RED BLOOD CELL
     Route: 065
     Dates: start: 20161026, end: 20161026
  14. CARBOPLATIN. [Suspect]
     Active Substance: CARBOPLATIN
     Indication: NON-SMALL CELL LUNG CANCER
     Dosage: 6 MG/ML/MIN
     Route: 041
     Dates: start: 20161006
  15. PANTOPRAZOLE SODIUM. [Concomitant]
     Active Substance: PANTOPRAZOLE SODIUM
     Indication: PROPHYLAXIS
     Route: 065
     Dates: start: 20160807
  16. MACROGOL [Concomitant]
     Active Substance: POLYETHYLENE GLYCOLS
     Indication: CONSTIPATION
     Route: 065
     Dates: start: 20161006
  17. METOCLOPRAMIDE. [Concomitant]
     Active Substance: METOCLOPRAMIDE
     Indication: NAUSEA
     Route: 065
     Dates: start: 20161008
  18. ABRAXANE [Suspect]
     Active Substance: PACLITAXEL
     Indication: NON-SMALL CELL LUNG CANCER
     Dosage: 100
     Route: 041
     Dates: start: 20161006
  19. OXAZEPAM. [Concomitant]
     Active Substance: OXAZEPAM
     Indication: INSOMNIA
     Route: 065
     Dates: start: 20161006

REACTIONS (1)
  - Disorientation [Not Recovered/Not Resolved]

NARRATIVE: CASE EVENT DATE: 20161123
